FAERS Safety Report 9777946 (Version 2)
Quarter: 2013Q4

REPORT INFORMATION
  Report Type: Spontaneous
  Country: IT (occurrence: IT)
  Receive Date: 20131223
  Receipt Date: 20131223
  Transmission Date: 20140711
  Serious: Yes (Other)
  Sender: FDA-Public Use
  Company Number: IT-BRISTOL-MYERS SQUIBB COMPANY-19843846

PATIENT
  Age: 67 Year
  Sex: Female

DRUGS (3)
  1. CARBOPLATIN INJECTION [Suspect]
     Indication: OVARIAN CANCER
     Dosage: 1 DF=600MG/60ML DOSAGE/4990 MG?LAST DOSE: 09DEC2013
     Route: 042
     Dates: start: 20131025
  2. PACLITAXEL [Suspect]
     Indication: OVARIAN CANCER
     Dosage: LAST DOSE: 09DEC2013
     Route: 042
     Dates: start: 20131025
  3. AVASTIN [Suspect]
     Indication: OVARIAN CANCER
     Dosage: 400 MG INF US ION SOLUTION?LAST DOSE: 09DEC2013
     Route: 042
     Dates: start: 20131025

REACTIONS (2)
  - Neutropenia [Recovered/Resolved]
  - Leukopenia [Recovered/Resolved]
